FAERS Safety Report 6444425-1 (Version None)
Quarter: 2009Q4

REPORT INFORMATION
  Report Type: 
  Country: None (occurrence: None)
  Receive Date: 20091116
  Receipt Date: 20091116
  Transmission Date: 20100525
  Serious: No
  Sender: FDA-Public Use
  Company Number: None

PATIENT

DRUGS (1)
  1. COLGATE MAXFREST FLUORIDE TOOTHPASTE [Suspect]
     Dosage: 4.6 OUNCES OTHER, IDENTIFY IN LABEL REMARKS
     Dates: end: 20091030

REACTIONS (3)
  - GINGIVAL PAIN [None]
  - MALAISE [None]
  - ORAL PAIN [None]
